FAERS Safety Report 11524935 (Version 5)
Quarter: 2015Q4

REPORT INFORMATION
  Report Type: Spontaneous
  Country: DE (occurrence: DE)
  Receive Date: 20150918
  Receipt Date: 20151117
  Transmission Date: 20160304
  Serious: Yes (Death, Hospitalization, Other)
  Sender: FDA-Public Use
  Company Number: DE-BRISTOL-MYERS SQUIBB COMPANY-BMS-2015-060623

PATIENT
  Age: 82 Year
  Sex: Male

DRUGS (3)
  1. PROPRANOLOL [Concomitant]
     Active Substance: PROPRANOLOL\PROPRANOLOL HYDROCHLORIDE
     Indication: HYPERTENSION
     Dosage: UNK
     Route: 048
  2. AZATHIOPRINE. [Concomitant]
     Active Substance: AZATHIOPRINE
     Indication: POLYNEUROPATHY
     Dosage: 75 MG, QD
     Route: 048
  3. NIVOLUMAB BMS [Suspect]
     Active Substance: NIVOLUMAB
     Indication: MALIGNANT MELANOMA
     Dosage: 3 MG/KG, UNK
     Route: 042
     Dates: start: 20150819

REACTIONS (5)
  - Polyneuropathy [Unknown]
  - Paraesthesia [Fatal]
  - Respiratory failure [Fatal]
  - Muscular weakness [Fatal]
  - Quadriplegia [Fatal]

NARRATIVE: CASE EVENT DATE: 20150902
